FAERS Safety Report 13072299 (Version 1)
Quarter: 2016Q4

REPORT INFORMATION
  Report Type: Spontaneous
  Country: US (occurrence: US)
  Receive Date: 20161229
  Receipt Date: 20161229
  Transmission Date: 20170207
  Serious: Yes (Hospitalization)
  Sender: FDA-Public Use
  Company Number: US-OTSUKA-2016_030147

PATIENT
  Age: 88 Year
  Sex: Male

DRUGS (1)
  1. SAMSCA [Suspect]
     Active Substance: TOLVAPTAN
     Indication: PRODUCT USED FOR UNKNOWN INDICATION
     Dosage: 30 MG, QD
     Route: 048
     Dates: start: 20150427

REACTIONS (3)
  - Incorrect drug administration duration [Unknown]
  - Off label use [Unknown]
  - Hospitalisation [Unknown]

NARRATIVE: CASE EVENT DATE: 20150427
